FAERS Safety Report 15149680 (Version 1)
Quarter: 2018Q3

REPORT INFORMATION
  Report Type: Spontaneous
  Country: US (occurrence: US)
  Receive Date: 20180619
  Receipt Date: 20180619
  Transmission Date: 20181010
  Serious: No
  Sender: FDA-Public Use
  Company Number: None

PATIENT
  Sex: Male

DRUGS (2)
  1. ROSUVASTATIN. [Suspect]
     Active Substance: ROSUVASTATIN
  2. LOVASTATIN. [Suspect]
     Active Substance: LOVASTATIN

REACTIONS (3)
  - Drug intolerance [None]
  - Myalgia [None]
  - Muscular weakness [None]
